FAERS Safety Report 11870828 (Version 1)
Quarter: 2015Q4

REPORT INFORMATION
  Report Type: Spontaneous
  Country: US (occurrence: None)
  Receive Date: 20151224
  Receipt Date: 20151224
  Transmission Date: 20160305
  Serious: Yes (Hospitalization)
  Sender: FDA-Public Use
  Company Number: None

PATIENT
  Age: 22 Year
  Sex: Male

DRUGS (2)
  1. CLONAZEPAM. [Suspect]
     Active Substance: CLONAZEPAM
     Indication: SUICIDE ATTEMPT
     Route: 048
     Dates: start: 20150817, end: 20150817
  2. CYCLOBENZAPRINE [Suspect]
     Active Substance: CYCLOBENZAPRINE
     Route: 048

REACTIONS (7)
  - Blood pressure decreased [None]
  - Intentional overdose [None]
  - Unresponsive to stimuli [None]
  - Aggression [None]
  - Stress [None]
  - Agitation [None]
  - Heart rate decreased [None]

NARRATIVE: CASE EVENT DATE: 20150817
